FAERS Safety Report 8185354-5 (Version None)
Quarter: 2012Q1

REPORT INFORMATION
  Report Type: 
  Country: None (occurrence: None)
  Receive Date: 20120305
  Receipt Date: 20120228
  Transmission Date: 20120608
  Serious: Yes (Hospitalization, Other)
  Sender: FDA-Public Use
  Company Number: PHHO2010DE02916

PATIENT
  Sex: Male
  Weight: 72.1 kg

DRUGS (6)
  1. TORSEMIDE [Suspect]
     Dosage: 5 MG, UNK
     Route: 048
     Dates: start: 20100208
  2. AFINITOR [Suspect]
     Dosage: NO TREATMENT
     Dates: start: 20100219, end: 20100222
  3. TORSEMIDE [Suspect]
     Dosage: 15 MG, UNK
     Route: 048
     Dates: start: 20100115, end: 20100129
  4. TORSEMIDE [Suspect]
     Dosage: 10 MG, UNK
     Route: 048
     Dates: start: 20100130, end: 20100207
  5. AFINITOR [Suspect]
     Dosage: 10 MG, UNK
     Route: 048
     Dates: start: 20100223
  6. AFINITOR [Suspect]
     Indication: NEUROENDOCRINE TUMOUR
     Dosage: 10 MG, UNK
     Route: 048
     Dates: start: 20091222, end: 20100218

REACTIONS (10)
  - DIARRHOEA [None]
  - DERMATITIS [None]
  - OEDEMA [None]
  - DISORIENTATION [None]
  - OVERDOSE [None]
  - ACNE [None]
  - INFECTION [None]
  - BLOOD UREA INCREASED [None]
  - AGITATION [None]
  - RENAL FAILURE ACUTE [None]
